FAERS Safety Report 15064480 (Version 1)
Quarter: 2018Q2

REPORT INFORMATION
  Report Type: Report from Study
  Country: US (occurrence: US)
  Receive Date: 20180625
  Receipt Date: 20180625
  Transmission Date: 20180711
  Serious: No
  Sender: FDA-Public Use
  Company Number: US-AMGEN-USASL2016067741

PATIENT
  Age: 51 Year
  Sex: Female
  Weight: 53.52 kg

DRUGS (1)
  1. REPATHA [Suspect]
     Active Substance: EVOLOCUMAB
     Indication: BLOOD CHOLESTEROL INCREASED
     Dosage: UNK
     Route: 065

REACTIONS (4)
  - Skin swelling [Unknown]
  - Hyperhidrosis [Unknown]
  - Rash [Recovering/Resolving]
  - Hot flush [Unknown]
